FAERS Safety Report 7693626-3 (Version None)
Quarter: 2011Q3

REPORT INFORMATION
  Report Type: 
  Country: None (occurrence: None)
  Receive Date: 20110819
  Receipt Date: 20110816
  Transmission Date: 20111222
  Serious: Yes (Other)
  Sender: FDA-Public Use
  Company Number: ZA-SANOFI-AVENTIS-2011SA052207

PATIENT

DRUGS (1)
  1. ZOLPIDEM [Suspect]
     Route: 065

REACTIONS (1)
  - DEMENTIA [None]
